FAERS Safety Report 5716292-2 (Version None)
Quarter: 2008Q2

REPORT INFORMATION
  Report Type: 
  Country: None (occurrence: None)
  Receive Date: 20080424
  Receipt Date: 20080422
  Transmission Date: 20081010
  Serious: Yes (Hospitalization)
  Sender: FDA-Public Use
  Company Number: B0517833A

PATIENT
  Age: 2 Month
  Sex: Female
  Weight: 4 kg

DRUGS (1)
  1. AUGMENTIN '125' [Suspect]
     Indication: COUGH
     Dosage: 5ML PER DAY
     Route: 065

REACTIONS (3)
  - BLEPHAROSPASM [None]
  - DISCOMFORT [None]
  - TREMOR [None]
